FAERS Safety Report 8222684-2 (Version None)
Quarter: 2012Q1

REPORT INFORMATION
  Report Type: 
  Country: None (occurrence: None)
  Receive Date: 20120315
  Receipt Date: 20120305
  Transmission Date: 20120608
  Serious: Yes (Other)
  Sender: FDA-Public Use
  Company Number: 2012SP012274

PATIENT
  Age: 59 Year
  Sex: Male
  Weight: 57 kg

DRUGS (5)
  1. PEG-INTRON [Suspect]
     Indication: PRODUCT USED FOR UNKNOWN INDICATION
     Dosage: 1.5 MCG/KG; QW; SC
     Route: 058
     Dates: start: 20120221
  2. RIBAVIRIN [Concomitant]
  3. REBETOL [Suspect]
     Indication: PRODUCT USED FOR UNKNOWN INDICATION
     Dosage: 600 MG; QD; PO
     Route: 048
     Dates: start: 20120221
  4. INTERFERON [Concomitant]
  5. TELAVIC (TELAPREVIR) (INVESTIGATIONAL DRUG) [Suspect]
     Dosage: 1500 MG; QD; PO
     Route: 048
     Dates: start: 20120221

REACTIONS (1)
  - SKIN DISORDER [None]
